FAERS Safety Report 7368955-3 (Version None)
Quarter: 2011Q1

REPORT INFORMATION
  Report Type: 
  Country: None (occurrence: None)
  Receive Date: 20110314
  Receipt Date: 20110301
  Transmission Date: 20110831
  Serious: Yes (Hospitalization)
  Sender: FDA-Public Use
  Company Number: 028420

PATIENT
  Sex: Male

DRUGS (1)
  1. CIMZIA [Suspect]
     Indication: RHEUMATOID ARTHRITIS
     Dosage: (200MG/ML SUBCUTANEOUS)
     Route: 058

REACTIONS (3)
  - MALAISE [None]
  - CHEST PAIN [None]
  - PHARYNGEAL OEDEMA [None]
